FAERS Safety Report 20776241 (Version 1)
Quarter: 2022Q2

REPORT INFORMATION
  Report Type: Spontaneous
  Country: US (occurrence: None)
  Receive Date: 20220502
  Receipt Date: 20220502
  Transmission Date: 20220721
  Serious: Yes (Hospitalization, Disabling)
  Sender: FDA-Public Use
  Company Number: None

PATIENT
  Age: 69 Year
  Sex: Male
  Weight: 95.71 kg

DRUGS (20)
  1. ISOSORBIDE MONONITRATE ER [Suspect]
     Active Substance: ISOSORBIDE MONONITRATE
     Indication: Chest pain
     Dosage: FREQUENCY : DAILY;?
     Route: 048
     Dates: start: 20220217, end: 20220228
  2. CARDIZEM [Concomitant]
     Active Substance: DILTIAZEM HYDROCHLORIDE
  3. METOPROLOL [Concomitant]
     Active Substance: METOPROLOL
  4. METOLAZONE [Concomitant]
     Active Substance: METOLAZONE
  5. JARDIANCE [Concomitant]
     Active Substance: EMPAGLIFLOZIN
  6. TORSEMIDE [Concomitant]
     Active Substance: TORSEMIDE
  7. FINASTERIDE [Concomitant]
     Active Substance: FINASTERIDE
  8. FLOMAX [Concomitant]
     Active Substance: TAMSULOSIN HYDROCHLORIDE
  9. ALLOPURINOL [Concomitant]
     Active Substance: ALLOPURINOL
  10. PEPCID [Concomitant]
     Active Substance: FAMOTIDINE
  11. NOVOLIN 70/30 [Concomitant]
     Active Substance: INSULIN HUMAN
  12. ELIQUIS [Concomitant]
     Active Substance: APIXABAN
  13. SENNA [Concomitant]
     Active Substance: SENNA LEAF\SENNOSIDES\SENNOSIDES A AND B
  14. MAGNESIUM [Concomitant]
     Active Substance: MAGNESIUM
  15. VITAMIN D3 [Concomitant]
     Active Substance: CHOLECALCIFEROL
  16. BIOTIN [Concomitant]
     Active Substance: BIOTIN
  17. FOLIC ACID [Concomitant]
     Active Substance: FOLIC ACID
  18. VITAMIN B12 [Concomitant]
     Active Substance: CYANOCOBALAMIN
  19. TYLENOL [Concomitant]
     Active Substance: ACETAMINOPHEN
  20. VITAMIN B6 [Concomitant]
     Active Substance: PYRIDOXINE HYDROCHLORIDE

REACTIONS (17)
  - Cardiac failure congestive [None]
  - Atrial fibrillation [None]
  - Rales [None]
  - Feeding disorder [None]
  - Gait disturbance [None]
  - Dyspnoea [None]
  - Anxiety [None]
  - Tremor [None]
  - Visual impairment [None]
  - Reading disorder [None]
  - Cognitive disorder [None]
  - Musculoskeletal stiffness [None]
  - Tendon disorder [None]
  - Renal impairment [None]
  - Lung infiltration [None]
  - Weight decreased [None]
  - Fluid retention [None]

NARRATIVE: CASE EVENT DATE: 20220301
